FAERS Safety Report 4289146-9 (Version None)
Quarter: 2004Q1

REPORT INFORMATION
  Report Type: 
  Country: None (occurrence: None)
  Receive Date: 20040206
  Receipt Date: 20040203
  Transmission Date: 20041129
  Serious: Yes (Hospitalization)
  Sender: FDA-Public Use
  Company Number: STA-AE-04-MTX-045

PATIENT
  Age: 36 Year
  Sex: Female

DRUGS (6)
  1. METHOTREXATE [Suspect]
     Indication: PSORIATIC ARTHROPATHY
     Dosage: 15 MG 1X PER 1 WK, ORAL
     Route: 047
     Dates: end: 20031001
  2. METHOTREXATE [Suspect]
     Dosage: 15 MG 1X PER 1 WK, ORAL
     Route: 048
     Dates: start: 20031114, end: 20031210
  3. BREXIDOL [Suspect]
     Indication: PSORIATIC ARTHROPATHY
     Dosage: 20 MG 1X PER 1 DAY, ORAL
     Route: 048
     Dates: end: 20031001
  4. BREXIDOL [Suspect]
     Indication: PSORIATIC ARTHROPATHY
     Dosage: 20 MG 1XPER 1 DAY, ORAL
     Route: 048
     Dates: start: 20031114, end: 20031210
  5. DICLOXACILLIN SODIUM MONOHYDRATE [Concomitant]
  6. SEPTOPAL (AMINOACETIC ACID/GENTAMICIN SULFATE/POLYMETHYLMETHACRYLATE/Z [Concomitant]

REACTIONS (5)
  - BONE MARROW DEPRESSION [None]
  - DRUG INTERACTION [None]
  - DRUG TOXICITY [None]
  - LABORATORY TEST ABNORMAL [None]
  - RECTAL HAEMORRHAGE [None]
